FAERS Safety Report 7271606-X (Version None)
Quarter: 2011Q1

REPORT INFORMATION
  Report Type: 
  Country: None (occurrence: None)
  Receive Date: 20110128
  Receipt Date: 20110128
  Transmission Date: 20110831
  Serious: Yes (Hospitalization)
  Sender: FDA-Public Use
  Company Number: None

PATIENT
  Age: 59 Year
  Sex: Female
  Weight: 65.318 kg

DRUGS (12)
  1. AZATHIOPRINE [Concomitant]
  2. PLAVIX [Concomitant]
  3. GABAPENTIN [Concomitant]
  4. OMEPRAZOLE [Concomitant]
  5. PROCRIT [Suspect]
     Indication: RENAL FAILURE CHRONIC
     Dosage: 20,000 UNITS SUBCUTANEOUS EVERY OTHER WEEK
     Route: 058
  6. PREDNISONE [Concomitant]
  7. ISOSORBIDE DINITRATE [Concomitant]
  8. HYDROCODONE BITARTRATE + ACETAMINOPHEN [Concomitant]
  9. RANEXA [Concomitant]
  10. NITROGLYCERIN [Concomitant]
  11. MAG-OXIDE [Concomitant]
  12. FUROSEMIDE [Concomitant]

REACTIONS (1)
  - MYOCARDIAL INFARCTION [None]
